FAERS Safety Report 8243975-5 (Version None)
Quarter: 2012Q1

REPORT INFORMATION
  Report Type: 
  Country: None (occurrence: None)
  Receive Date: 20120329
  Receipt Date: 20111219
  Transmission Date: 20120608
  Serious: No
  Sender: FDA-Public Use
  Company Number: US-MYLANLABS-2011S1024355

PATIENT
  Age: 47 Year
  Sex: Female

DRUGS (3)
  1. LEXAPRO [Concomitant]
  2. ESTRADIOL [Suspect]
     Dosage: QWEEK
     Route: 062
     Dates: start: 20111020
  3. ESTRADIOL [Suspect]
     Indication: MENOPAUSE
     Dosage: QWEEK
     Route: 062
     Dates: start: 20111020

REACTIONS (3)
  - APPLICATION SITE PRURITUS [None]
  - APPLICATION SITE ERYTHEMA [None]
  - RASH [None]
